FAERS Safety Report 14981238 (Version 1)
Quarter: 2018Q2

REPORT INFORMATION
  Report Type: Not Available
  Country: US (occurrence: US)
  Receive Date: 20180606
  Receipt Date: 20180606
  Transmission Date: 20180711
  Serious: No
  Sender: FDA-Public Use
  Company Number: US-NEUROCRINE BIOSCIENCES INC.-2018NBI01627

PATIENT
  Sex: Female

DRUGS (10)
  1. JANUMET XR [Concomitant]
     Active Substance: METFORMIN HYDROCHLORIDE\SITAGLIPTIN PHOSPHATE
     Dosage: 50/1000 2 TABLETS AT NIGHT
  2. PRISTIQ EXTENDED-RELEASE [Concomitant]
     Active Substance: DESVENLAFAXINE SUCCINATE
     Dosage: 1 IN THE MORNING
  3. DEPLIN [Concomitant]
     Active Substance: LEVOMEFOLATE CALCIUM
     Dosage: 1 DAILY IN THE MORNING
     Route: 048
  4. TRAZODONE [Concomitant]
     Active Substance: TRAZODONE HYDROCHLORIDE
     Dosage: 1 AT BED TIME
  5. CELEBREX [Concomitant]
     Active Substance: CELECOXIB
     Dosage: 1 DAILY IN THE MORNING
  6. TRULICITY INJECTION [Concomitant]
     Dosage: WEEKLY EVERY WEDNESDAY 1
  7. ATORVASTATIN [Concomitant]
     Active Substance: ATORVASTATIN
     Dosage: 1 AT BED TIME
  8. ACARBOSE. [Concomitant]
     Active Substance: ACARBOSE
  9. XANAX [Concomitant]
     Active Substance: ALPRAZOLAM
  10. INGREZZA [Suspect]
     Active Substance: VALBENAZINE
     Indication: TARDIVE DYSKINESIA
     Route: 048
     Dates: start: 2017

REACTIONS (1)
  - Asthenia [Not Recovered/Not Resolved]

NARRATIVE: CASE EVENT DATE: 2018
